FAERS Safety Report 7656857-4 (Version None)
Quarter: 2011Q3

REPORT INFORMATION
  Report Type: 
  Country: None (occurrence: None)
  Receive Date: 20110802
  Receipt Date: 20110721
  Transmission Date: 20111222
  Serious: Yes (Hospitalization)
  Sender: FDA-Public Use
  Company Number: 1000022513

PATIENT
  Age: 70 Year
  Sex: Female

DRUGS (2)
  1. LEXAPRO [Suspect]
     Dosage: 10 MG (10 MG, 1 IN 1 D), ORAL
     Route: 048
  2. SIMVASTATIN (SIMVASTATIN) (TABLETS) (SIMVASTATIN) [Concomitant]

REACTIONS (1)
  - PULMONARY HYPERTENSION [None]
